FAERS Safety Report 22540820 (Version 2)
Quarter: 2023Q2

REPORT INFORMATION
  Report Type: Spontaneous
  Country: US (occurrence: US)
  Receive Date: 20230609
  Receipt Date: 20230615
  Transmission Date: 20230721
  Serious: Yes (Other)
  Sender: FDA-Public Use
  Company Number: US-PFIZER INC-202300215355

PATIENT
  Age: 65 Year
  Sex: Female

DRUGS (1)
  1. PREMARIN [Suspect]
     Active Substance: ESTROGENS, CONJUGATED
     Dosage: 1 G [5 DAYS ON, THEN 2-3 TIMES/WEEK]
     Route: 067

REACTIONS (4)
  - Oophorectomy [Unknown]
  - Illness [Unknown]
  - Off label use [Unknown]
  - Intentional product misuse [Unknown]
